FAERS Safety Report 6614448-8 (Version None)
Quarter: 2010Q1

REPORT INFORMATION
  Report Type: 
  Country: None (occurrence: None)
  Receive Date: 20100304
  Receipt Date: 20100304
  Transmission Date: 20100710
  Serious: Yes (Death)
  Sender: FDA-Public Use
  Company Number: None

PATIENT
  Sex: Female

DRUGS (6)
  1. REVLIMID [Suspect]
     Indication: NON-HODGKIN'S LYMPHOMA
     Dosage: 10 MG DAILY ORALLY
     Route: 048
     Dates: start: 20090729, end: 20090826
  2. ISORDIL [Concomitant]
  3. ALENDRONATE SODIUM [Concomitant]
  4. TEMAZEPAM [Concomitant]
  5. GABAPENTIN [Concomitant]
  6. FUROSEMIDE [Concomitant]

REACTIONS (1)
  - NO ADVERSE EVENT [None]
